FAERS Safety Report 19948264 (Version 1)
Quarter: 2021Q4

REPORT INFORMATION
  Report Type: Spontaneous
  Country: PL (occurrence: PL)
  Receive Date: 20211013
  Receipt Date: 20211013
  Transmission Date: 20220303
  Serious: Yes (Other)
  Sender: FDA-Public Use
  Company Number: PL-ACCORD-240917

PATIENT
  Age: 31 Year
  Sex: Female

DRUGS (4)
  1. FLUOROURACIL [Suspect]
     Active Substance: FLUOROURACIL
     Indication: Colon cancer
     Dosage: 600 MG /M2 22-HOUR INFUSION ON DAY 1
     Dates: start: 2020
  2. OXALIPLATIN [Suspect]
     Active Substance: OXALIPLATIN
     Indication: Colon cancer
     Dosage: DAY 1
     Dates: start: 2020
  3. LEUCOVORIN [Suspect]
     Active Substance: LEUCOVORIN
     Indication: Colon cancer
     Dates: start: 2020
  4. GRANULOCYTE COLONY STIMULATING FACT [Concomitant]

REACTIONS (3)
  - Neutropenia [Unknown]
  - Neuropathy peripheral [Unknown]
  - Asthenia [Unknown]
